FAERS Safety Report 11641381 (Version 3)
Quarter: 2016Q1

REPORT INFORMATION
  Report Type: Spontaneous
  Country: US (occurrence: US)
  Receive Date: 20151019
  Receipt Date: 20160108
  Transmission Date: 20160525
  Serious: Yes (Death)
  Sender: FDA-Public Use
  Company Number: US-PFIZER INC-2015343593

PATIENT
  Age: 60 Year
  Sex: Female

DRUGS (1)
  1. BENEFIX [Suspect]
     Active Substance: COAGULATION FACTOR IX RECOMBINANT HUMAN\ISOPROPYL ALCOHOL
     Indication: FACTOR IX DEFICIENCY
     Dosage: 2000 UNITS EVERY 12 -24 HOURS AS NEEDED OR 4000 UNITS FOR SEVERE BLEED

REACTIONS (1)
  - Death [Fatal]
